FAERS Safety Report 25554570 (Version 1)
Quarter: 2025Q3

REPORT INFORMATION
  Report Type: Other
  Country: CA (occurrence: CA)
  Receive Date: 20250715
  Receipt Date: 20250715
  Transmission Date: 20251020
  Serious: Yes (Other)
  Sender: BIOCON
  Company Number: CA-BIOCON BIOLOGICS LIMITED-BBL2025003590

PATIENT

DRUGS (2)
  1. ADALIMUMAB [Suspect]
     Active Substance: ADALIMUMAB
     Indication: Takayasu^s arteritis
     Route: 058
  2. ADALIMUMAB [Suspect]
     Active Substance: ADALIMUMAB
     Route: 058

REACTIONS (7)
  - Haematochezia [Unknown]
  - Xerophthalmia [Unknown]
  - Vision blurred [Unknown]
  - Constipation [Unknown]
  - Neck pain [Unknown]
  - Condition aggravated [Unknown]
  - Drug ineffective [Unknown]
